FAERS Safety Report 25245064 (Version 1)
Quarter: 2025Q2

REPORT INFORMATION
  Report Type: Spontaneous
  Country: US (occurrence: None)
  Receive Date: 20250425
  Receipt Date: 20250425
  Transmission Date: 20250716
  Serious: Yes (Death)
  Sender: FDA-CTU
  Company Number: None

PATIENT
  Age: 39 Year
  Sex: Female
  Weight: 113 kg

DRUGS (2)
  1. ENHERTU [Suspect]
     Active Substance: FAM-TRASTUZUMAB DERUXTECAN-NXKI
     Indication: HER2 positive breast cancer
  2. fam-trastuzumab [Concomitant]
     Dates: start: 20241114, end: 20250204

REACTIONS (5)
  - Pneumonitis [None]
  - Acute respiratory failure [None]
  - Pneumocystis jirovecii pneumonia [None]
  - Pneumothorax [None]
  - Oedema peripheral [None]

NARRATIVE: CASE EVENT DATE: 20241114
